FAERS Safety Report 23968088 (Version 1)
Quarter: 2024Q2

REPORT INFORMATION
  Report Type: Spontaneous
  Country: US (occurrence: US)
  Receive Date: 20240612
  Receipt Date: 20240612
  Transmission Date: 20240716
  Serious: No
  Sender: FDA-Public Use
  Company Number: US-PERRIGO-23US008078

PATIENT
  Age: 72 Year
  Sex: Male
  Weight: 76.644 kg

DRUGS (2)
  1. DICLOFENAC SODIUM [Suspect]
     Active Substance: DICLOFENAC\DICLOFENAC SODIUM
     Indication: Pain
     Dosage: SMALL AMOUNT, QD
     Route: 061
     Dates: start: 2023, end: 20230710
  2. DICLOFENAC SODIUM [Suspect]
     Active Substance: DICLOFENAC\DICLOFENAC SODIUM
     Dosage: SMALL MOUNT, QD
     Route: 061
     Dates: start: 20230717, end: 20230717

REACTIONS (2)
  - Product administered at inappropriate site [Recovered/Resolved]
  - Incorrect product administration duration [Recovered/Resolved]

NARRATIVE: CASE EVENT DATE: 20230101
